FAERS Safety Report 22350354 (Version 1)
Quarter: 2023Q2

REPORT INFORMATION
  Report Type: Spontaneous
  Country: UA (occurrence: UA)
  Receive Date: 20230522
  Receipt Date: 20230522
  Transmission Date: 20230721
  Serious: Yes (Death)
  Sender: FDA-Public Use
  Company Number: UA-MYLANLABS-2023M1051855

PATIENT
  Age: 34 Year
  Sex: Male

DRUGS (4)
  1. PRETOMANID [Suspect]
     Active Substance: PRETOMANID
     Indication: Disseminated tuberculosis
     Dosage: 0.2 GRAM, QD (1/1 DAY(S))
     Route: 048
     Dates: start: 20230417, end: 20230420
  2. LINEZOLID [Suspect]
     Active Substance: LINEZOLID
     Indication: Disseminated tuberculosis
     Dosage: 0.6 GRAM, QD (1/1 DAY(S))
     Route: 048
     Dates: start: 20230417, end: 20230420
  3. MOXIFLOXACIN [Suspect]
     Active Substance: MOXIFLOXACIN
     Indication: Disseminated tuberculosis
     Dosage: 0.4 GRAM, QD (INTRAVENOUS DRIP)
     Route: 042
     Dates: start: 20230417, end: 20230420
  4. BEDAQUILINE [Suspect]
     Active Substance: BEDAQUILINE
     Indication: Disseminated tuberculosis
     Dosage: 0.4 GRAM, QD
     Route: 048
     Dates: start: 20230417, end: 20230420

REACTIONS (1)
  - Death [Fatal]

NARRATIVE: CASE EVENT DATE: 20230420
